FAERS Safety Report 18600854 (Version 1)
Quarter: 2020Q4

REPORT INFORMATION
  Report Type: Spontaneous
  Country: BE (occurrence: BE)
  Receive Date: 20201210
  Receipt Date: 20201210
  Transmission Date: 20210114
  Serious: Yes (Other)
  Sender: FDA-Public Use
  Company Number: BE-PFIZER INC-2020484938

PATIENT
  Age: 49 Year
  Sex: Male
  Weight: 60 kg

DRUGS (2)
  1. SERLAIN [Suspect]
     Active Substance: SERTRALINE HYDROCHLORIDE
     Indication: BIPOLAR DISORDER
  2. SERLAIN [Suspect]
     Active Substance: SERTRALINE HYDROCHLORIDE
     Indication: DEPRESSION
     Dosage: 50 MG, 1X/DAY (NEARLY EVERY DAY)

REACTIONS (7)
  - Syncope [Unknown]
  - Dyskinesia [Unknown]
  - Migraine [Unknown]
  - Ataxia [Unknown]
  - Sleep paralysis [Unknown]
  - Road traffic accident [Unknown]
  - Tinnitus [Unknown]

NARRATIVE: CASE EVENT DATE: 201004
